FAERS Safety Report 4893721-8 (Version None)
Quarter: 2006Q1

REPORT INFORMATION
  Report Type: 
  Country: None (occurrence: None)
  Receive Date: 20060127
  Receipt Date: 20060105
  Transmission Date: 20060701
  Serious: Yes (Death, Hospitalization)
  Sender: FDA-Public Use
  Company Number: FR-GLAXOSMITHKLINE-B0405898A

PATIENT
  Age: 66 Year
  Sex: Female

DRUGS (5)
  1. FORTUM [Suspect]
     Indication: LUNG INFECTION
     Route: 042
     Dates: start: 20051223
  2. LOVENOX [Concomitant]
     Route: 065
  3. BACTRIM [Concomitant]
     Route: 065
  4. CORTANCYL [Concomitant]
     Route: 065
  5. NEORAL [Concomitant]
     Route: 065

REACTIONS (4)
  - ANTIBIOTIC LEVEL ABOVE THERAPEUTIC [None]
  - DEATH [None]
  - LEUKOPENIA [None]
  - THROMBOCYTOPENIA [None]
